FAERS Safety Report 10390439 (Version 2)
Quarter: 2014Q4

REPORT INFORMATION
  Report Type: Spontaneous
  Country: US (occurrence: None)
  Receive Date: 20140814
  Receipt Date: 20141014
  Transmission Date: 20150528
  Serious: Yes (Hospitalization, Disabling)
  Sender: FDA-Public Use
  Company Number: 2014050069

PATIENT
  Age: 36 Year
  Sex: Female

DRUGS (3)
  1. PERCOCET (OXYCODONE, ACETAMINOPHEN) [Concomitant]
  2. ZOFRAN ODT (ONDANSETRON) [Concomitant]
  3. LEVSIN [Suspect]
     Active Substance: HYOSCYAMINE SULFATE
     Indication: ABDOMINAL PAIN UPPER
     Route: 060
     Dates: start: 20130511, end: 20130512

REACTIONS (13)
  - Vomiting [None]
  - Pain [None]
  - Ruptured cerebral aneurysm [None]
  - Hypersomnia [None]
  - Nausea [None]
  - Dysuria [None]
  - Amnesia [None]
  - Speech disorder [None]
  - Fatigue [None]
  - Diarrhoea [None]
  - Malaise [None]
  - Gait disturbance [None]
  - Injury [None]

NARRATIVE: CASE EVENT DATE: 201305
